FAERS Safety Report 9175487 (Version 1)
Quarter: 2013Q1

REPORT INFORMATION
  Report Type: Spontaneous
  Country: GR (occurrence: GR)
  Receive Date: 20130320
  Receipt Date: 20130320
  Transmission Date: 20140127
  Serious: Yes (Other)
  Sender: FDA-Public Use
  Company Number: GR-ROXANE LABORATORIES, INC.-2013-RO-00393RO

PATIENT
  Age: 50 Year
  Sex: Female

DRUGS (4)
  1. ANASTROZOLE [Suspect]
     Indication: BREAST CANCER
     Dosage: 1 MG
     Route: 048
  2. LETROZOLE [Suspect]
     Indication: BREAST CANCER
     Dosage: 2.5 MG
  3. EXEMESTANE [Suspect]
     Indication: BREAST CANCER
     Dosage: 25 MG
  4. TAMOXIFEN [Suspect]
     Indication: BREAST CANCER
     Dosage: 20 MG

REACTIONS (2)
  - Diarrhoea [Unknown]
  - Drug intolerance [Unknown]
